FAERS Safety Report 8821487 (Version 1)
Quarter: 2012Q4

REPORT INFORMATION
  Report Type: 
  Country: FR (occurrence: FR)
  Receive Date: 20121002
  Receipt Date: 20121002
  Transmission Date: 20130627
  Serious: Yes (Other)
  Sender: FDA-Public Use
  Company Number: FR-ABBOTT-12P-056-0955058-00

PATIENT
  Sex: Female

DRUGS (3)
  1. KALETRA [Suspect]
     Indication: HIV INFECTION
  2. KIVEXA [Suspect]
     Indication: HIV INFECTION
  3. KIVEXA [Concomitant]
     Indication: HIV INFECTION

REACTIONS (1)
  - Gestational diabetes [Recovered/Resolved]
